FAERS Safety Report 19148041 (Version 1)
Quarter: 2021Q2

REPORT INFORMATION
  Report Type: Spontaneous
  Country: CA (occurrence: CA)
  Receive Date: 20210417
  Receipt Date: 20210417
  Transmission Date: 20210717
  Serious: Yes (Death)
  Sender: FDA-Public Use
  Company Number: CA-ROCHE-2811502

PATIENT
  Age: 59 Year
  Sex: Female

DRUGS (5)
  1. ROSUVASTATIN. [Concomitant]
     Active Substance: ROSUVASTATIN
     Route: 058
  2. ATENOL [Concomitant]
     Active Substance: ATENOLOL
  3. PERINDOPRIL [Concomitant]
     Active Substance: PERINDOPRIL
  4. DEXAMETHASONE. [Concomitant]
     Active Substance: DEXAMETHASONE
     Route: 048
  5. BEVACIZUMAB. [Suspect]
     Active Substance: BEVACIZUMAB
     Indication: BRAIN NEOPLASM MALIGNANT
     Route: 042

REACTIONS (4)
  - Oxygen saturation decreased [Fatal]
  - Death [Fatal]
  - Wheelchair user [Fatal]
  - Blood pressure systolic increased [Fatal]
